FAERS Safety Report 5449649-8 (Version None)
Quarter: 2007Q3

REPORT INFORMATION
  Report Type: 
  Country: None (occurrence: None)
  Receive Date: 20070910
  Receipt Date: 20070724
  Transmission Date: 20080115
  Serious: Yes (Life-Threatening, Other)
  Sender: FDA-Public Use
  Company Number: 2007US-09159

PATIENT
  Age: 84 Year
  Sex: Female

DRUGS (4)
  1. ISOPTIN SR [Suspect]
     Indication: HYPERTENSION
     Dosage: 180 MG, ORAL
     Route: 048
  2. LEVOTHYROXINE SODIUM [Suspect]
     Indication: DRUG USE FOR UNKNOWN INDICATION
  3. DIOVAN HCT [Concomitant]
  4. SIMVASTATIN [Concomitant]

REACTIONS (3)
  - ATRIOVENTRICULAR BLOCK SECOND DEGREE [None]
  - SYNCOPE [None]
  - TACHYCARDIA [None]
